FAERS Safety Report 5201176-9 (Version None)
Quarter: 2007Q1

REPORT INFORMATION
  Report Type: 
  Country: None (occurrence: None)
  Receive Date: 20070103
  Receipt Date: 20061226
  Transmission Date: 20070707
  Serious: Yes (Hospitalization)
  Sender: FDA-Public Use
  Company Number: E2090-00160-SPO-ES

PATIENT
  Age: 35 Year
  Sex: Female
  Weight: 67 kg

DRUGS (11)
  1. ZONEGRAN [Suspect]
     Indication: EPILEPSY
     Dosage: SEE IMAGE
     Route: 048
     Dates: start: 20060901, end: 20060901
  2. ZONEGRAN [Suspect]
     Indication: EPILEPSY
     Dosage: SEE IMAGE
     Route: 048
     Dates: start: 20060910, end: 20060901
  3. ZONEGRAN [Suspect]
     Indication: EPILEPSY
     Dosage: SEE IMAGE
     Route: 048
     Dates: start: 20060901, end: 20061001
  4. ZONEGRAN [Suspect]
     Indication: EPILEPSY
     Dosage: SEE IMAGE
     Route: 048
     Dates: start: 20061001, end: 20061001
  5. ZONEGRAN [Suspect]
     Indication: EPILEPSY
     Dosage: SEE IMAGE
     Route: 048
     Dates: start: 20061015, end: 20061101
  6. ZONEGRAN [Suspect]
     Indication: EPILEPSY
     Dosage: SEE IMAGE
     Route: 048
     Dates: start: 20061101, end: 20061201
  7. TOPAMAX [Suspect]
     Dosage: 300 MG, ORAL
     Route: 048
  8. NOYAFREN (CLOBAZAM) [Concomitant]
  9. RISPERDAL [Concomitant]
  10. TRILEPTAL [Concomitant]
  11. PHENYTOIN SODIUM CAP [Concomitant]

REACTIONS (6)
  - COMA [None]
  - CONDITION AGGRAVATED [None]
  - DRUG INTERACTION [None]
  - EPILEPSY [None]
  - HYPERTHERMIA [None]
  - MENTAL DISORDER [None]
